FAERS Safety Report 8426285-2 (Version None)
Quarter: 2012Q2

REPORT INFORMATION
  Report Type: 
  Country: None (occurrence: None)
  Receive Date: 20120611
  Receipt Date: 20120528
  Transmission Date: 20120825
  Serious: Yes (Death)
  Sender: FDA-Public Use
  Company Number: DE-RANBAXY-2012US-57052

PATIENT

DRUGS (7)
  1. ACETYLSALICYLIC ACID SRT [Concomitant]
     Indication: ACUTE CORONARY SYNDROME
     Dosage: UNK
     Route: 065
  2. ENOXAPARIN [Concomitant]
     Indication: ACUTE CORONARY SYNDROME
     Dosage: 40 MG, BID
     Route: 058
  3. CLOPIDOGREL [Concomitant]
     Indication: ACUTE CORONARY SYNDROME
     Dosage: UNK
     Route: 065
  4. PANTOPRAZOLE [Suspect]
     Dosage: 40 MG,DAILY
     Route: 058
  5. TIROFIBAN [Concomitant]
     Dosage: 0.1 MCG/KG/MIN
     Route: 042
  6. PANTOPRAZOLE [Suspect]
     Indication: PROPHYLAXIS
     Dosage: 40 MG, BID
     Route: 048
  7. TIROFIBAN [Concomitant]
     Indication: ACUTE CORONARY SYNDROME
     Dosage: 0.4 MCG/KG/MIN INFUSION FOR 30 MIN
     Route: 042

REACTIONS (1)
  - DEATH [None]
